FAERS Safety Report 12783411 (Version 1)
Quarter: 2016Q3

REPORT INFORMATION
  Report Type: Spontaneous
  Country: US (occurrence: US)
  Receive Date: 20160927
  Receipt Date: 20160927
  Transmission Date: 20161109
  Serious: Yes (Hospitalization)
  Sender: FDA-Public Use
  Company Number: US-ASTRAZENECA-2016SF00553

PATIENT
  Age: 736 Month
  Sex: Female
  Weight: 70.3 kg

DRUGS (1)
  1. BYDUREON [Suspect]
     Active Substance: EXENATIDE
     Indication: BLOOD GLUCOSE INCREASED
     Dosage: 2 MG 4 COUNT ONCE A WEEK
     Route: 065
     Dates: start: 201603

REACTIONS (6)
  - Injection site urticaria [Unknown]
  - Product quality issue [Unknown]
  - Blood glucose increased [Unknown]
  - Anxiety [Unknown]
  - Haematemesis [Unknown]
  - Injection site haemorrhage [Unknown]

NARRATIVE: CASE EVENT DATE: 201603
